FAERS Safety Report 5532052-X (Version None)
Quarter: 2007Q4

REPORT INFORMATION
  Report Type: 
  Country: None (occurrence: None)
  Receive Date: 20071203
  Receipt Date: 20071126
  Transmission Date: 20080405
  Serious: Yes (Other)
  Sender: FDA-Public Use
  Company Number: B0489096A

PATIENT
  Sex: Female

DRUGS (1)
  1. TIMENTIN [Suspect]
     Indication: DRUG USE FOR UNKNOWN INDICATION
     Route: 065
     Dates: start: 20070919

REACTIONS (3)
  - SIMILAR REACTION ON PREVIOUS EXPOSURE TO DRUG [None]
  - URGE INCONTINENCE [None]
  - URINARY INCONTINENCE [None]
